FAERS Safety Report 19152722 (Version 1)
Quarter: 2021Q2

REPORT INFORMATION
  Report Type: Spontaneous
  Country: US (occurrence: US)
  Receive Date: 20210419
  Receipt Date: 20210419
  Transmission Date: 20210717
  Serious: Yes (Other)
  Sender: FDA-Public Use
  Company Number: US-GLAXOSMITHKLINE-US2021GSK087408

PATIENT
  Sex: Male

DRUGS (2)
  1. RANITIDINE. [Suspect]
     Active Substance: RANITIDINE
     Indication: GASTRITIS
     Dosage: 150 MG
     Route: 065
     Dates: start: 201009, end: 201906
  2. RANITIDINE. [Suspect]
     Active Substance: RANITIDINE
     Indication: GASTRITIS
     Dosage: 150 MG
     Route: 065
     Dates: start: 201009, end: 201906

REACTIONS (1)
  - Renal cancer [Unknown]
